FAERS Safety Report 23931365 (Version 1)
Quarter: 2024Q2

REPORT INFORMATION
  Report Type: Spontaneous
  Country: GB (occurrence: GB)
  Receive Date: 20240603
  Receipt Date: 20240603
  Transmission Date: 20240716
  Serious: Yes (Other)
  Sender: FDA-Public Use
  Company Number: None

PATIENT
  Age: 71 Year
  Sex: Male
  Weight: 83 kg

DRUGS (5)
  1. ENTYVIO [Suspect]
     Active Substance: VEDOLIZUMAB
     Indication: Crohn^s disease
     Dosage: UNK UNK, MONTHLY
     Route: 065
     Dates: start: 20210607, end: 20240404
  2. ENTYVIO [Suspect]
     Active Substance: VEDOLIZUMAB
     Indication: Crohn^s disease
     Dosage: UNK UNK, MONTHLY
     Route: 065
     Dates: start: 20210607, end: 20240404
  3. ENTYVIO [Suspect]
     Active Substance: VEDOLIZUMAB
     Indication: Crohn^s disease
     Dosage: UNK UNK, MONTHLY
     Route: 065
     Dates: start: 20210607, end: 20240404
  4. ENTYVIO [Suspect]
     Active Substance: VEDOLIZUMAB
     Indication: Crohn^s disease
     Dosage: UNK UNK, MONTHLY
     Route: 065
     Dates: start: 20210607, end: 20240404
  5. DENOSUMAB [Suspect]
     Active Substance: DENOSUMAB
     Indication: Osteoporosis
     Dosage: UNK UNK, Q6MONTHS
     Route: 065
     Dates: start: 202310, end: 20240404

REACTIONS (7)
  - Abdominal pain upper [Not Recovered/Not Resolved]
  - Pain of skin [Unknown]
  - Blister [Unknown]
  - Scab [Unknown]
  - Photosensitivity reaction [Unknown]
  - Alopecia [Unknown]
  - Pruritus [Unknown]

NARRATIVE: CASE EVENT DATE: 20231105
